FAERS Safety Report 11825463 (Version 2)
Quarter: 2015Q4

REPORT INFORMATION
  Report Type: Spontaneous
  Country: PE (occurrence: PE)
  Receive Date: 20151211
  Receipt Date: 20151217
  Transmission Date: 20160305
  Serious: Yes (Hospitalization)
  Sender: FDA-Public Use
  Company Number: PE-009507513-1512PER004063

PATIENT
  Age: 48 Year
  Sex: Female

DRUGS (2)
  1. JANUMET [Suspect]
     Active Substance: METFORMIN HYDROCHLORIDE\SITAGLIPTIN PHOSPHATE
     Indication: GLUCOSE TOLERANCE IMPAIRED
     Dosage: 50/1000 MG DAILY
     Route: 048
     Dates: start: 20151104, end: 20151120
  2. JANUMET [Suspect]
     Active Substance: METFORMIN HYDROCHLORIDE\SITAGLIPTIN PHOSPHATE
     Dosage: UNK
     Route: 048
     Dates: start: 20151125

REACTIONS (3)
  - Umbilical hernia [Recovering/Resolving]
  - Inguinal hernia [Recovering/Resolving]
  - Breast mass [Recovering/Resolving]

NARRATIVE: CASE EVENT DATE: 201511
